FAERS Safety Report 9992682 (Version 1)
Quarter: 2014Q1

REPORT INFORMATION
  Report Type: Spontaneous
  Country: US (occurrence: US)
  Receive Date: 20140310
  Receipt Date: 20140310
  Transmission Date: 20141002
  Serious: No
  Sender: FDA-Public Use
  Company Number: US-PFIZER INC-2014068518

PATIENT
  Sex: Male

DRUGS (3)
  1. ZOLOFT [Suspect]
     Dosage: 50 MG, UNK
     Dates: start: 2014, end: 2014
  2. ZOLOFT [Suspect]
     Dosage: 100 MG, UNK
     Dates: start: 2014, end: 2014
  3. ZOLOFT [Suspect]
     Dosage: UNK
     Dates: start: 2014

REACTIONS (2)
  - Agitation [Unknown]
  - Anxiety [Unknown]
